FAERS Safety Report 15075028 (Version 1)
Quarter: 2018Q2

REPORT INFORMATION
  Report Type: Report from Study
  Country: US (occurrence: US)
  Receive Date: 20180627
  Receipt Date: 20180627
  Transmission Date: 20180711
  Serious: No
  Sender: FDA-Public Use
  Company Number: US-SAOL THERAPEUTICS-2017SAO01667

PATIENT
  Sex: Male

DRUGS (40)
  1. DROPERIDOL. [Suspect]
     Active Substance: DROPERIDOL
     Dosage: 200.14 ?G, \DAY
     Route: 037
     Dates: start: 20120206, end: 20120305
  2. KETAMINE [Suspect]
     Active Substance: KETAMINE
     Dosage: 170.05 ?G, \DAY; MAX DOSE
     Route: 037
     Dates: start: 20120130, end: 20120206
  3. KETAMINE [Suspect]
     Active Substance: KETAMINE
     Dosage: 149.83 ?G, \DAY
     Route: 037
     Dates: start: 20120305, end: 20120313
  4. COMPOUNDED BACLOFEN [Suspect]
     Active Substance: BACLOFEN
     Dosage: 472.31 ?G, \DAY; MAX DOSE
     Route: 037
     Dates: start: 20120313
  5. MORPHINE [Suspect]
     Active Substance: MORPHINE
     Dosage: 1.2492 MG, \DAY
     Route: 037
     Dates: start: 20120130, end: 20120206
  6. MORPHINE [Suspect]
     Active Substance: MORPHINE
     Dosage: 1.7712 MG, \DAY; MAX DOSE
     Route: 037
     Dates: start: 20120313
  7. BUPIVACAINE. [Suspect]
     Active Substance: BUPIVACAINE
     Dosage: 34.010 MG, \DAY; MAX DOSE
     Route: 037
     Dates: start: 20120130, end: 20120206
  8. BUPIVACAINE. [Suspect]
     Active Substance: BUPIVACAINE
     Dosage: 29.967 MG, \DAY
     Route: 037
     Dates: start: 20120305, end: 20120313
  9. COMPOUNDED BACLOFEN [Suspect]
     Active Substance: BACLOFEN
     Dosage: 388.68 ?G, \DAY; MAX DOSE
     Route: 037
     Dates: start: 20120206, end: 20120305
  10. BUPIVACAINE. [Suspect]
     Active Substance: BUPIVACAINE
     Dosage: 39.290 MG, \DAY; MAX DOSE
     Route: 037
     Dates: start: 20120305, end: 20120313
  11. BUPIVACAINE. [Suspect]
     Active Substance: BUPIVACAINE
     Dosage: 35.423 MG, \DAY; MAX DOSE
     Route: 037
     Dates: start: 20120313
  12. KETAMINE [Suspect]
     Active Substance: KETAMINE
     Dosage: 177.12 ?G, \DAY; MAX DOSE
     Route: 037
     Dates: start: 20120313
  13. COMPOUNDED BACLOFEN [Suspect]
     Active Substance: BACLOFEN
     Dosage: 523.86 ?G, \DAY; MAX DOSE
     Route: 037
     Dates: start: 20120305, end: 20120313
  14. COMPOUNDED BACLOFEN [Suspect]
     Active Substance: BACLOFEN
     Dosage: 346.53 ?G, \DAY
     Route: 037
     Dates: start: 20120313
  15. MORPHINE [Suspect]
     Active Substance: MORPHINE
     Dosage: 1.457 MG, \DAY; MAX DOSE
     Route: 037
     Dates: start: 20120206, end: 20120305
  16. MORPHINE [Suspect]
     Active Substance: MORPHINE
     Dosage: 1.299 MG, \DAY
     Route: 037
     Dates: start: 20120313
  17. BUPIVACAINE. [Suspect]
     Active Substance: BUPIVACAINE
     Dosage: 25.990 MG, \DAY
     Route: 037
     Dates: start: 20120313
  18. DROPERIDOL. [Suspect]
     Active Substance: DROPERIDOL
     Dosage: 354.23 ?G, \DAY; MAX DOSE
     Route: 037
     Dates: start: 20120313
  19. COMPOUNDED BACLOFEN [Suspect]
     Active Substance: BACLOFEN
     Dosage: 333.11 ?G, \DAY
     Route: 037
     Dates: start: 20120130, end: 20120206
  20. MORPHINE [Suspect]
     Active Substance: MORPHINE
     Dosage: 1.4983 MG, \DAY
     Route: 037
     Dates: start: 20120305, end: 20120313
  21. MORPHINE [Suspect]
     Active Substance: MORPHINE
     Dosage: 1.9645 MG, \DAY; MAX DOSE
     Route: 037
     Dates: start: 20120305, end: 20120313
  22. BUPIVACAINE. [Suspect]
     Active Substance: BUPIVACAINE
     Dosage: 24.984 MG, \DAY
     Route: 037
     Dates: start: 20120130, end: 20120206
  23. DROPERIDOL. [Suspect]
     Active Substance: DROPERIDOL
     Dosage: 392.90 ?G, \DAY; MAX DOSE
     Route: 037
     Dates: start: 20120305, end: 20120313
  24. KETAMINE [Suspect]
     Active Substance: KETAMINE
     Dosage: 100.07 ?G, \DAY
     Route: 037
     Dates: start: 20120206, end: 20120305
  25. KETAMINE [Suspect]
     Active Substance: KETAMINE
     Dosage: 145.75 ?G, \DAY; MAX DOSE
     Route: 037
     Dates: start: 20120206, end: 20120305
  26. MORPHINE [Suspect]
     Active Substance: MORPHINE
     Dosage: 1.0007 MG, \DAY
     Route: 037
     Dates: start: 20120206, end: 20120305
  27. DROPERIDOL. [Suspect]
     Active Substance: DROPERIDOL
     Dosage: 249.84 ?G, \DAY
     Route: 037
     Dates: start: 20120130, end: 20120206
  28. DROPERIDOL. [Suspect]
     Active Substance: DROPERIDOL
     Dosage: 291.51 ?G, \DAY; MAX DOSE
     Route: 037
     Dates: start: 20120206, end: 20120305
  29. MORPHINE [Suspect]
     Active Substance: MORPHINE
     Dosage: 1.7005 MG, \DAY; MAX DOSE
     Route: 037
     Dates: start: 20120130, end: 20120206
  30. BUPIVACAINE. [Suspect]
     Active Substance: BUPIVACAINE
     Dosage: 20.014 MG, \DAY
     Route: 037
     Dates: start: 20120206, end: 20120305
  31. BUPIVACAINE. [Suspect]
     Active Substance: BUPIVACAINE
     Dosage: 29.151 MG, \DAY; MAX DOSE
     Route: 037
     Dates: start: 20120206, end: 20120305
  32. DROPERIDOL. [Suspect]
     Active Substance: DROPERIDOL
     Dosage: 340.10 ?G, \DAY; MAX DOSE
     Route: 037
     Dates: start: 20120130, end: 20120206
  33. DROPERIDOL. [Suspect]
     Active Substance: DROPERIDOL
     Dosage: 299.67 ?G, \DAY
     Route: 037
     Dates: start: 20120305, end: 20120313
  34. DROPERIDOL. [Suspect]
     Active Substance: DROPERIDOL
     Dosage: 259.90 ?G, \DAY
     Route: 037
     Dates: start: 20120313
  35. KETAMINE [Suspect]
     Active Substance: KETAMINE
     Dosage: 196.45 ?G, \DAY; MAX DOSE
     Route: 037
     Dates: start: 20120305, end: 20120313
  36. COMPOUNDED BACLOFEN [Suspect]
     Active Substance: BACLOFEN
     Dosage: 453.47 ?G, \DAY; MAX DOSE
     Route: 037
     Dates: start: 20120130, end: 20120206
  37. COMPOUNDED BACLOFEN [Suspect]
     Active Substance: BACLOFEN
     Dosage: 266.86 ?G, \DAY
     Route: 037
     Dates: start: 20120206, end: 20120305
  38. COMPOUNDED BACLOFEN [Suspect]
     Active Substance: BACLOFEN
     Dosage: 399.56 ?G, \DAY
     Route: 037
     Dates: start: 20120305, end: 20120313
  39. KETAMINE [Suspect]
     Active Substance: KETAMINE
     Dosage: 124.92 ?G, \DAY
     Route: 037
     Dates: start: 20120130, end: 20120206
  40. KETAMINE [Suspect]
     Active Substance: KETAMINE
     Dosage: 129.95 ?G, \DAY
     Route: 037
     Dates: start: 20120313

REACTIONS (6)
  - Hypoaesthesia [Not Recovered/Not Resolved]
  - Nausea [Not Recovered/Not Resolved]
  - Toxicity to various agents [Recovered/Resolved]
  - Paraesthesia [Not Recovered/Not Resolved]
  - Fatigue [Not Recovered/Not Resolved]
  - Vomiting [Not Recovered/Not Resolved]
